FAERS Safety Report 4609957-7 (Version None)
Quarter: 2005Q1

REPORT INFORMATION
  Report Type: 
  Country: None (occurrence: None)
  Receive Date: 20050314
  Receipt Date: 20050307
  Transmission Date: 20050727
  Serious: Yes (Hospitalization, Other)
  Sender: FDA-Public Use
  Company Number: 006#1#2005-00008

PATIENT
  Sex: Male

DRUGS (1)
  1. EDEX [Suspect]

REACTIONS (3)
  - ASTHENIA [None]
  - ERECTION INCREASED [None]
  - PARAESTHESIA [None]
